FAERS Safety Report 22266965 (Version 3)
Quarter: 2023Q2

REPORT INFORMATION
  Report Type: Spontaneous
  Country: US (occurrence: US)
  Receive Date: 20230428
  Receipt Date: 20230623
  Transmission Date: 20230721
  Serious: Yes (Hospitalization, Other)
  Sender: FDA-Public Use
  Company Number: US-PFIZER INC-202300169692

PATIENT
  Age: 67 Year
  Sex: Female
  Weight: 58.5 kg

DRUGS (4)
  1. IBRANCE [Suspect]
     Active Substance: PALBOCICLIB
     Indication: Breast cancer metastatic
     Dosage: 125 MG, CYCLIC (1 TABLET DAILY ON DAYS 1 THROUGH 21 OF EVERY 28 DAY CYCLE)
     Route: 048
     Dates: start: 20230414
  2. IBRANCE [Suspect]
     Active Substance: PALBOCICLIB
     Dosage: 125 MG, CYCLIC (1 TABLET DAILY ON DAYS 1 THROUGH 21 OF EVERY 28 DAY CYCLE)
     Route: 048
     Dates: start: 20230531
  3. LETROZOLE [Concomitant]
     Active Substance: LETROZOLE
     Indication: Breast cancer female
     Dosage: UNK
     Dates: start: 20230414
  4. HYDROCHLOROTHIAZIDE [Concomitant]
     Active Substance: HYDROCHLOROTHIAZIDE
     Dosage: UNK

REACTIONS (8)
  - Streptococcal infection [Recovered/Resolved]
  - Dizziness [Recovered/Resolved]
  - Hot flush [Unknown]
  - Rhinorrhoea [Unknown]
  - Pleural effusion [Unknown]
  - White blood cell count decreased [Unknown]
  - Oedema [Unknown]
  - Body temperature increased [Unknown]
